FAERS Safety Report 4301794-6 (Version None)
Quarter: 2004Q1

REPORT INFORMATION
  Report Type: 
  Country: None (occurrence: None)
  Receive Date: 20040219
  Receipt Date: 20040206
  Transmission Date: 20041129
  Serious: Yes (Hospitalization)
  Sender: FDA-Public Use
  Company Number: US-SHR-03-014567

PATIENT
  Age: 45 Year
  Sex: Male

DRUGS (6)
  1. BETASERON [Suspect]
     Indication: MULTIPLE SCLEROSIS
     Dosage: 8 MIU, EVERY 2D, SUBCUTANEOUS
     Route: 058
     Dates: start: 20020801
  2. CORTISONE (CORTISONE) [Suspect]
     Indication: ASTHMA
     Dosage: HIGH DOSES
     Dates: start: 19600101
  3. IV ((STEROID) [Suspect]
     Indication: MULTIPLE SCLEROSIS
     Dates: start: 20030601
  4. PROVIGIL [Concomitant]
  5. ALBUTEROL [Concomitant]
  6. INHALERS [Concomitant]

REACTIONS (2)
  - ASEPTIC NECROSIS BONE [None]
  - MULTIPLE SCLEROSIS [None]
